FAERS Safety Report 8092132-4 (Version None)
Quarter: 2012Q1

REPORT INFORMATION
  Report Type: 
  Country: None (occurrence: None)
  Receive Date: 20120129
  Receipt Date: 20111103
  Transmission Date: 20120608
  Serious: No
  Sender: FDA-Public Use
  Company Number: US-ABBOTT-11P-163-0871901-00

PATIENT
  Sex: Male
  Weight: 67.192 kg

DRUGS (4)
  1. FENOFIBRATE [Concomitant]
     Indication: BLOOD CHOLESTEROL INCREASED
  2. HUMIRA [Suspect]
     Indication: PSORIASIS
     Route: 058
     Dates: start: 20111004
  3. PROSCAR [Concomitant]
     Indication: PRODUCT USED FOR UNKNOWN INDICATION
  4. ANTIBIOTICS [Concomitant]
     Indication: GINGIVITIS

REACTIONS (2)
  - PAIN IN EXTREMITY [None]
  - ARTHRALGIA [None]
